FAERS Safety Report 24191443 (Version 2)
Quarter: 2024Q3

REPORT INFORMATION
  Report Type: Spontaneous
  Country: US (occurrence: US)
  Receive Date: 20240808
  Receipt Date: 20240930
  Transmission Date: 20241017
  Serious: Yes (Other)
  Sender: NEUROCRINE BIOSCIENCES
  Company Number: US-NEUROCRINE BIOSCIENCES INC.-2024NBI07553

PATIENT
  Age: 83 Year
  Sex: Female

DRUGS (2)
  1. INGREZZA [Suspect]
     Active Substance: VALBENAZINE
     Indication: Tardive dyskinesia
     Dosage: 40 MILLIGRAM, UNKNOWN
     Route: 065
     Dates: end: 20240615
  2. INGREZZA [Suspect]
     Active Substance: VALBENAZINE
     Dosage: 80 MILLIGRAM, UNKNOWN
     Route: 065
     Dates: start: 2023

REACTIONS (5)
  - Dementia [Unknown]
  - Unevaluable event [Recovering/Resolving]
  - Aphasia [Recovered/Resolved]
  - Parkinsonism [Recovering/Resolving]
  - Somnolence [Recovering/Resolving]
